FAERS Safety Report 14021348 (Version 2)
Quarter: 2017Q4

REPORT INFORMATION
  Report Type: Spontaneous
  Country: JP (occurrence: JP)
  Receive Date: 20170928
  Receipt Date: 20171222
  Transmission Date: 20180321
  Serious: Yes (Death, Hospitalization, Other)
  Sender: FDA-Public Use
  Company Number: JP-ELI_LILLY_AND_COMPANY-JP201709008984

PATIENT
  Age: 69 Year
  Sex: Male
  Weight: 56 kg

DRUGS (5)
  1. LOXOPROFEN [Suspect]
     Active Substance: LOXOPROFEN
     Indication: MUSCULOSKELETAL PAIN
     Dosage: 60 MG, TID
     Route: 048
  2. PACLITAXEL. [Concomitant]
     Active Substance: PACLITAXEL
     Indication: GASTRIC CANCER STAGE III
     Dosage: 96 MG, OTHER
     Route: 041
     Dates: start: 20170706, end: 20170831
  3. CYRAMZA [Suspect]
     Active Substance: RAMUCIRUMAB
     Indication: GASTRIC CANCER STAGE III
     Dosage: 400 MG, OTHER
     Route: 041
     Dates: start: 20170706, end: 20170831
  4. ADALAT [Concomitant]
     Active Substance: NIFEDIPINE
     Dosage: UNK
     Route: 048
  5. REBAMIPIDE [Concomitant]
     Active Substance: REBAMIPIDE
     Dosage: 100 MG, TID
     Route: 048

REACTIONS (9)
  - Malaise [Unknown]
  - Hypertension [Not Recovered/Not Resolved]
  - Eating disorder [Unknown]
  - Nephrotic syndrome [Not Recovered/Not Resolved]
  - Malignant neoplasm progression [Unknown]
  - Disuse syndrome [Unknown]
  - Shock haemorrhagic [Fatal]
  - Hypoaesthesia [Unknown]
  - Tumour haemorrhage [Fatal]

NARRATIVE: CASE EVENT DATE: 20170713
